FAERS Safety Report 10231043 (Version 1)
Quarter: 2014Q2

REPORT INFORMATION
  Report Type: Spontaneous
  Country: US (occurrence: US)
  Receive Date: 20140611
  Receipt Date: 20140611
  Transmission Date: 20141212
  Serious: No
  Sender: FDA-Public Use
  Company Number: US-TEVA-487581USA

PATIENT
  Sex: Female

DRUGS (1)
  1. PARAGARD 380A [Suspect]
     Indication: CONTRACEPTION
     Route: 015

REACTIONS (6)
  - Throat tightness [Unknown]
  - Eczema infected [Unknown]
  - Muscle spasms [Unknown]
  - Muscle twitching [Unknown]
  - Acne [Unknown]
  - Urticaria [Unknown]
